FAERS Safety Report 7357186-9 (Version None)
Quarter: 2011Q1

REPORT INFORMATION
  Report Type: 
  Country: None (occurrence: None)
  Receive Date: 20110317
  Receipt Date: 20110310
  Transmission Date: 20110831
  Serious: No
  Sender: FDA-Public Use
  Company Number: US-PFIZER INC-2010003680

PATIENT
  Sex: Female
  Weight: 65.76 kg

DRUGS (3)
  1. ZOLOFT [Suspect]
     Indication: ANXIETY
  2. KLONOPIN [Concomitant]
     Indication: ANXIETY
     Dosage: UNK
     Route: 048
  3. ZOLOFT [Suspect]
     Indication: DEPRESSION
     Dosage: 100 MG, 1X/DAY
     Dates: start: 20091101

REACTIONS (8)
  - FLATULENCE [None]
  - VITAMIN D DECREASED [None]
  - ABDOMINAL PAIN UPPER [None]
  - INSOMNIA [None]
  - DRUG INEFFECTIVE [None]
  - DIARRHOEA [None]
  - CHROMATURIA [None]
  - PARAESTHESIA [None]
